FAERS Safety Report 13799815 (Version 1)
Quarter: 2017Q3

REPORT INFORMATION
  Report Type: Spontaneous
  Country: US (occurrence: US)
  Receive Date: 20170727
  Receipt Date: 20170727
  Transmission Date: 20171127
  Serious: Yes (Other)
  Sender: FDA-Public Use
  Company Number: None

PATIENT
  Age: 78 Year
  Sex: Female
  Weight: 55.8 kg

DRUGS (16)
  1. VITAMIN D3 [Concomitant]
     Active Substance: CHOLECALCIFEROL
  2. METROPROL [Concomitant]
  3. MULTIVITAMINS [Concomitant]
     Active Substance: VITAMINS
  4. FIOROCET WITH CAFFEINE [Concomitant]
  5. LOW DOSE CHEWABLE ASPIRIN [Concomitant]
     Active Substance: ASPIRIN
  6. ACETAMINOPHEN. [Concomitant]
     Active Substance: ACETAMINOPHEN
  7. BIOTIN [Concomitant]
     Active Substance: BIOTIN
  8. FENOFIBRATE. [Concomitant]
     Active Substance: FENOFIBRATE
  9. SYSTANE (HYPROMELLOSE 2910 (4000 MPA.S)) [Concomitant]
     Active Substance: HYPROMELLOSE 2910 (4000 MPA.S)
  10. VITAMIN E [Concomitant]
     Active Substance: .ALPHA.-TOCOPHEROL
  11. PRADAXA [Suspect]
     Active Substance: DABIGATRAN ETEXILATE MESYLATE
     Indication: ATRIAL FIBRILLATION
     Dosage: ?          QUANTITY:1 CAPSULE(S);?
     Route: 048
     Dates: start: 20170623, end: 20170704
  12. COCHLEAR DEVICE RIGHT SIDE [Concomitant]
  13. LORSATEN [Concomitant]
  14. FLONAISE [Concomitant]
  15. CLOPIDOGREL [Concomitant]
     Active Substance: CLOPIDOGREL BISULFATE
  16. FISH OIL [Concomitant]
     Active Substance: FISH OIL

REACTIONS (6)
  - Back pain [None]
  - Flatulence [None]
  - Burning sensation [None]
  - Nausea [None]
  - Eructation [None]
  - Haematochezia [None]

NARRATIVE: CASE EVENT DATE: 20170702
